FAERS Safety Report 7691128-1 (Version None)
Quarter: 2011Q3

REPORT INFORMATION
  Report Type: 
  Country: None (occurrence: None)
  Receive Date: 20110815
  Receipt Date: 20110805
  Transmission Date: 20111222
  Serious: Yes (Hospitalization, Other)
  Sender: FDA-Public Use
  Company Number: 2009SP023508

PATIENT
  Age: 34 Year
  Sex: Female

DRUGS (1)
  1. NUVARING [Suspect]
     Dates: start: 20030101, end: 20061208

REACTIONS (19)
  - MUSCULAR WEAKNESS [None]
  - LEIOMYOMA [None]
  - OEDEMA PERIPHERAL [None]
  - INTERVERTEBRAL DISC PROTRUSION [None]
  - DYSMENORRHOEA [None]
  - UTERINE POLYP [None]
  - HYPERTENSION [None]
  - PULMONARY EMBOLISM [None]
  - MUSCULOSKELETAL PAIN [None]
  - PAIN IN EXTREMITY [None]
  - MENORRHAGIA [None]
  - MACULAR DEGENERATION [None]
  - DEEP VEIN THROMBOSIS [None]
  - LYMPHADENOPATHY [None]
  - BACK PAIN [None]
  - TYPE 2 DIABETES MELLITUS [None]
  - MUSCLE STRAIN [None]
  - BURSITIS [None]
  - NARCOLEPSY [None]
